FAERS Safety Report 15408620 (Version 3)
Quarter: 2018Q3

REPORT INFORMATION
  Report Type: Spontaneous
  Country: US (occurrence: US)
  Receive Date: 20180920
  Receipt Date: 20180920
  Transmission Date: 20181010
  Serious: Yes (Other)
  Sender: FDA-Public Use
  Company Number: PHHY2018US099848

PATIENT
  Age: 47 Year
  Sex: Male

DRUGS (5)
  1. METHYLPREDNISOLONE. [Suspect]
     Active Substance: METHYLPREDNISOLONE
     Indication: NEUROSARCOIDOSIS
     Dosage: 1 G, QD
     Route: 065
  2. METHYLPREDNISOLONE. [Suspect]
     Active Substance: METHYLPREDNISOLONE
     Indication: LYME DISEASE
     Dosage: 1 G, QD
     Route: 065
  3. CEFTRIAXONE. [Concomitant]
     Active Substance: CEFTRIAXONE
     Indication: LYME DISEASE
     Dosage: 2 G, UNK
     Route: 042
  4. INFLIXIMAB [Suspect]
     Active Substance: INFLIXIMAB
     Indication: NEUROSARCOIDOSIS
     Dosage: 3 MG/KG, UNK
     Route: 041
  5. PREDNISOLONE. [Suspect]
     Active Substance: PREDNISOLONE
     Indication: NEUROSARCOIDOSIS
     Dosage: 80 MG, UNK
     Route: 065

REACTIONS (3)
  - Paraplegia [Unknown]
  - Product use in unapproved indication [Unknown]
  - Hypoaesthesia [Unknown]
